FAERS Safety Report 16763590 (Version 5)
Quarter: 2020Q3

REPORT INFORMATION
  Report Type: Spontaneous
  Country: US (occurrence: US)
  Receive Date: 20190902
  Receipt Date: 20200924
  Transmission Date: 20201102
  Serious: Yes (Hospitalization, Other)
  Sender: FDA-Public Use
  Company Number: US-GILEAD-2019-0425721

PATIENT
  Sex: Female
  Weight: 117.93 kg

DRUGS (16)
  1. PENICILLIN NOS [Concomitant]
     Active Substance: PENICILLIN
  2. RETROVIR [Concomitant]
     Active Substance: ZIDOVUDINE
  3. ACETAMINOPHEN. [Concomitant]
     Active Substance: ACETAMINOPHEN
  4. CORTISONE [Concomitant]
     Active Substance: CORTISONE
  5. EPIVIR [Concomitant]
     Active Substance: LAMIVUDINE
  6. VIRACEPT [Concomitant]
     Active Substance: NELFINAVIR MESYLATE
  7. ZERIT [Concomitant]
     Active Substance: STAVUDINE
  8. AMOXICILLIN. [Concomitant]
     Active Substance: AMOXICILLIN
  9. BACTRIM [Concomitant]
     Active Substance: SULFAMETHOXAZOLE\TRIMETHOPRIM
  10. COMBIVIR [Concomitant]
     Active Substance: LAMIVUDINE\ZIDOVUDINE
  11. ASPIRIN (E.C.) [Concomitant]
     Active Substance: ASPIRIN
  12. FLEET LAXATIVE [Concomitant]
  13. LASIX + K [Concomitant]
     Active Substance: FUROSEMIDE\POTASSIUM CHLORIDE
  14. ATRIPLA [Suspect]
     Active Substance: EFAVIRENZ\EMTRICITABINE\TENOFOVIR DISOPROXIL FUMARATE
     Indication: HIV INFECTION
     Dosage: UNK
     Route: 048
     Dates: start: 20000101, end: 20180101
  15. VIREAD [Suspect]
     Active Substance: TENOFOVIR DISOPROXIL FUMARATE
     Indication: HIV INFECTION
     Route: 048
  16. ANTACID C [Concomitant]
     Active Substance: MAGNESIUM OXIDE\SODIUM BICARBONATE

REACTIONS (16)
  - Emotional distress [Unknown]
  - Economic problem [Unknown]
  - Osteoarthritis [Not Recovered/Not Resolved]
  - Pain [Unknown]
  - Depression [Not Recovered/Not Resolved]
  - Gait disturbance [Not Recovered/Not Resolved]
  - Chronic kidney disease [Unknown]
  - Bone density decreased [Unknown]
  - Anhedonia [Unknown]
  - Ill-defined disorder [Not Recovered/Not Resolved]
  - Osteoporosis [Not Recovered/Not Resolved]
  - Tooth loss [Unknown]
  - Renal failure [Not Recovered/Not Resolved]
  - Anxiety [Unknown]
  - Mobility decreased [Not Recovered/Not Resolved]
  - Insomnia [Not Recovered/Not Resolved]

NARRATIVE: CASE EVENT DATE: 2013
